FAERS Safety Report 20876022 (Version 5)
Quarter: 2022Q4

REPORT INFORMATION
  Report Type: Report from Study
  Country: US (occurrence: US)
  Receive Date: 20220526
  Receipt Date: 20221123
  Transmission Date: 20230113
  Serious: Yes (Other)
  Sender: FDA-Public Use
  Company Number: US-ABBVIE-22K-163-4409479-00

PATIENT
  Sex: Female

DRUGS (3)
  1. HUMIRA [Suspect]
     Active Substance: ADALIMUMAB
     Indication: Crohn^s disease
     Dosage: CITRATE FREE? FORM STRENGTH: 40 MG
     Route: 058
  2. HUMIRA [Suspect]
     Active Substance: ADALIMUMAB
  3. COVID-19 VACCINE [Concomitant]
     Indication: COVID-19 immunisation
     Dosage: TIME INTERVAL: 1 TOTAL
     Route: 030

REACTIONS (10)
  - Macular degeneration [Not Recovered/Not Resolved]
  - Blindness unilateral [Unknown]
  - Glaucoma [Not Recovered/Not Resolved]
  - Dizziness [Recovered/Resolved]
  - Neuritis [Recovering/Resolving]
  - Eye haemorrhage [Recovering/Resolving]
  - Eye disorder [Recovered/Resolved]
  - Eye disorder [Recovering/Resolving]
  - Eye pain [Recovering/Resolving]
  - Ocular hyperaemia [Recovering/Resolving]

NARRATIVE: CASE EVENT DATE: 20220101
